FAERS Safety Report 9486673 (Version 2)
Quarter: 2014Q1

REPORT INFORMATION
  Report Type: Spontaneous
  Country: US (occurrence: None)
  Receive Date: 20130827
  Receipt Date: 20140306
  Transmission Date: 20141002
  Serious: Yes (Other)
  Sender: FDA-Public Use
  Company Number: 163-21880-13082739

PATIENT
  Age: 85 Year
  Sex: Female

DRUGS (2)
  1. REVLIMID (LENALIDOMIDE) (25 MILLIGRAM, CAPSULES) [Suspect]
     Indication: PLASMA CELL MYELOMA
     Route: 048
     Dates: start: 201001, end: 2010
  2. TARCEVA (ERLOTINIB) (UNKNOWN [Concomitant]

REACTIONS (3)
  - Lung adenocarcinoma [None]
  - Malaise [None]
  - Full blood count decreased [None]
